FAERS Safety Report 25768715 (Version 1)
Quarter: 2025Q3

REPORT INFORMATION
  Report Type: Spontaneous
  Country: EU (occurrence: EU)
  Receive Date: 20250905
  Receipt Date: 20250905
  Transmission Date: 20251020
  Serious: Yes (Hospitalization, Other)
  Sender: PFIZER
  Company Number: EU-ROCHE-1097901

PATIENT
  Age: 50 Year
  Sex: Female
  Weight: 85 kg

DRUGS (26)
  1. DOCETAXEL [Suspect]
     Active Substance: DOCETAXEL
     Indication: HER2 positive breast cancer
     Dosage: 120 MG, EVERY 3 WEEKS (INFUSION)
     Route: 042
     Dates: start: 20120530
  2. DOCETAXEL [Suspect]
     Active Substance: DOCETAXEL
     Route: 042
  3. CARBOPLATIN [Suspect]
     Active Substance: CARBOPLATIN
     Indication: HER2 positive breast cancer
     Dosage: 780 MG, EVERY 3 WEEKS (INFUSION)
     Route: 042
     Dates: start: 20120530
  4. CARBOPLATIN [Suspect]
     Active Substance: CARBOPLATIN
     Route: 042
  5. TRASTUZUMAB [Suspect]
     Active Substance: TRASTUZUMAB
     Indication: HER2 positive breast cancer
     Dosage: 570 MG/KG, EVERY 3 WEEKS (INFUSION)
     Route: 042
     Dates: start: 20120530
  6. TRASTUZUMAB [Suspect]
     Active Substance: TRASTUZUMAB
     Dosage: 570 MG/KG, EVERY 3 WEEKS
     Route: 042
     Dates: start: 20120530
  7. TRASTUZUMAB [Suspect]
     Active Substance: TRASTUZUMAB
     Route: 042
  8. TRASTUZUMAB [Suspect]
     Active Substance: TRASTUZUMAB
     Route: 042
  9. PERTUZUMAB [Suspect]
     Active Substance: PERTUZUMAB
     Indication: HER2 positive breast cancer
     Route: 042
     Dates: start: 20120530
  10. PERTUZUMAB [Suspect]
     Active Substance: PERTUZUMAB
     Dosage: 420 MG, EVERY 3 WEEKS (INFUSION)
     Route: 042
  11. PERTUZUMAB [Suspect]
     Active Substance: PERTUZUMAB
     Dosage: UNK UNK, EVERY 3 WEEKS (INFUSION)
     Route: 042
  12. METOPROLOL SUCCINATE [Concomitant]
     Active Substance: METOPROLOL SUCCINATE
     Dates: start: 2002
  13. MOXONIDINE [Concomitant]
     Active Substance: MOXONIDINE
     Dates: start: 2002
  14. DAFIRO [Concomitant]
     Active Substance: AMLODIPINE\VALSARTAN
     Dates: start: 2002
  15. SIMVASTATIN [Concomitant]
     Active Substance: SIMVASTATIN
     Dates: start: 2008
  16. AMITRIPTYLINE HYDROCHLORIDE [Concomitant]
     Active Substance: AMITRIPTYLINE HYDROCHLORIDE
     Dates: start: 2007
  17. DEXAMETHASONE [Concomitant]
     Active Substance: DEXAMETHASONE
     Dosage: UNK UNK, DAILY
     Dates: start: 20120529
  18. GRANISETRON [Concomitant]
     Active Substance: GRANISETRON
     Dosage: UNK UNK, DAILY
     Dates: start: 20120530
  19. CIMETIDINE [Concomitant]
     Active Substance: CIMETIDINE
     Dates: start: 20120530
  20. CLEMASTINE [Concomitant]
     Active Substance: CLEMASTINE
     Dates: start: 20120530
  21. NEULASTA [Concomitant]
     Active Substance: PEGFILGRASTIM
     Dates: start: 20120531
  22. CIPROFLOXACIN [Concomitant]
     Active Substance: CIPROFLOXACIN
     Dates: start: 20120614, end: 20120618
  23. IBUPROFEN [Concomitant]
     Active Substance: IBUPROFEN
     Dates: start: 20120614, end: 20120618
  24. TAVOR (LORAZEPAM) [Concomitant]
     Active Substance: LORAZEPAM
     Dates: start: 20120627
  25. ZOLPIDEM [Concomitant]
     Active Substance: ZOLPIDEM TARTRATE
     Dates: start: 20120801
  26. ASPIRIN [Concomitant]
     Active Substance: ASPIRIN

REACTIONS (3)
  - Fatigue [Recovered/Resolved]
  - Hypokalaemia [Recovered/Resolved]
  - Off label use [Unknown]

NARRATIVE: CASE EVENT DATE: 20120530
